FAERS Safety Report 16838698 (Version 6)
Quarter: 2020Q1

REPORT INFORMATION
  Report Type: Report from Study
  Country: CO (occurrence: CO)
  Receive Date: 20190923
  Receipt Date: 20200107
  Transmission Date: 20200409
  Serious: Yes (Hospitalization, Other)
  Sender: FDA-Public Use
  Company Number: CO-BRISTOL-MYERS SQUIBB COMPANY-BMS-2019-046797

PATIENT
  Age: 71 Year
  Sex: Male

DRUGS (1)
  1. ABATACEPT [Suspect]
     Active Substance: ABATACEPT
     Indication: RHEUMATOID ARTHRITIS
     Dosage: 125 MILLIGRAM, QWK
     Route: 058
     Dates: start: 20150301, end: 20190610

REACTIONS (11)
  - Malaise [Recovering/Resolving]
  - Pyrexia [Recovering/Resolving]
  - Weight decreased [Unknown]
  - Decreased appetite [Unknown]
  - Hepatic mass [Recovering/Resolving]
  - Pain in extremity [Recovering/Resolving]
  - Hypotension [Recovered/Resolved]
  - Oedema peripheral [Recovering/Resolving]
  - Pneumonia [Recovering/Resolving]
  - Hepatic cancer [Recovering/Resolving]
  - Lung squamous cell carcinoma metastatic [Recovering/Resolving]

NARRATIVE: CASE EVENT DATE: 20190430
